FAERS Safety Report 18842334 (Version 1)
Quarter: 2021Q1

REPORT INFORMATION
  Report Type: Spontaneous
  Country: IN (occurrence: IN)
  Receive Date: 20210204
  Receipt Date: 20210204
  Transmission Date: 20210419
  Serious: Yes (Other)
  Sender: FDA-Public Use
  Company Number: IN-CADILA HEALTHCARE LIMITED-IN-ZYDUS-061684

PATIENT

DRUGS (3)
  1. TEMOZOLOMIDE. [Suspect]
     Active Substance: TEMOZOLOMIDE
     Indication: GLIOBLASTOMA
     Dosage: 100 MILLIGRAM, QD
     Route: 065
  2. TEMOZOLOMIDE. [Suspect]
     Active Substance: TEMOZOLOMIDE
     Dosage: 250 MILLIGRAM, QD
     Route: 065
  3. NIMOTUZUMAB [Suspect]
     Active Substance: NIMOTUZUMAB
     Indication: GLIOBLASTOMA
     Dosage: EVERY 15 DAYS
     Route: 065

REACTIONS (1)
  - Metastases to spinal cord [Unknown]
